FAERS Safety Report 6893690-5 (Version None)
Quarter: 2010Q3

REPORT INFORMATION
  Report Type: 
  Country: None (occurrence: None)
  Receive Date: 20100731
  Receipt Date: 20091229
  Transmission Date: 20110219
  Serious: No
  Sender: FDA-Public Use
  Company Number: US-PFIZER INC-2009258984

PATIENT
  Sex: Male

DRUGS (7)
  1. LIPITOR [Suspect]
     Indication: PERIPHERAL ARTERIAL OCCLUSIVE DISEASE
     Dosage: 40 MG, 1X/DAY
  2. ALLOPURINOL [Concomitant]
     Indication: GOUT
     Dosage: UNK
  3. NIFEDIPINE [Concomitant]
     Dosage: UNK DF, UNK
  4. ASPIRIN [Concomitant]
     Indication: ANTICOAGULANT THERAPY
     Dosage: UNK
  5. LUMIGAN [Concomitant]
     Indication: GLAUCOMA
     Dosage: UNK
  6. IBUPROFEN [Concomitant]
     Indication: SCIATIC NERVE INJURY
     Dosage: UNK
  7. METFORMIN HYDROCHLORIDE [Concomitant]

REACTIONS (1)
  - DRUG DOSE OMISSION [None]
